FAERS Safety Report 8169579-0 (Version None)
Quarter: 2012Q1

REPORT INFORMATION
  Report Type: 
  Country: None (occurrence: None)
  Receive Date: 20120228
  Receipt Date: 20120216
  Transmission Date: 20120608
  Serious: Yes (Hospitalization)
  Sender: FDA-Public Use
  Company Number: US-BAYER-2011-087346

PATIENT
  Age: 31 Year
  Sex: Female
  Weight: 91.156 kg

DRUGS (13)
  1. NASONEX [Concomitant]
     Dosage: 50 MCG/AC
  2. CYCLOBENZAPRINE [Concomitant]
     Dosage: 10 MG, UNK
  3. DROSPIRENONE AND ETHINYL ESTRADIOL [Suspect]
     Dosage: UNK
     Dates: start: 20040101, end: 20090101
  4. IBUPROFEN [Concomitant]
     Dosage: 800 MG, UNK
  5. YASMIN [Suspect]
     Dosage: UNK
     Dates: start: 20040101, end: 20090101
  6. HYDROCODONE W/ACETYLSALICYLIC ACID [Concomitant]
     Dosage: 7.5-750 MG
  7. PROMETHAZINE - CODEINE [CITRIC AC,CODEINE,PROMETHAZ,NA+ CITR AC,SU [Concomitant]
     Dosage: 6.25-10 SYRUP
  8. CLARITHROMYCIN [Concomitant]
     Dosage: 500 MG, UNK
  9. ALPRAZOLAM [Concomitant]
     Dosage: 0.5 MG, UNK
  10. CLARINEX [Concomitant]
     Dosage: 5-240 MG
  11. AMOXICILINA CLAV [Concomitant]
     Dosage: 500 MG, UNK
  12. MEDROXYPROGESTERONE ACETATE [Concomitant]
     Dosage: 10 MG, UNK
  13. EPIPEN [Concomitant]
     Dosage: 0.3 MG, UNK
     Route: 042

REACTIONS (2)
  - CHOLECYSTITIS CHRONIC [None]
  - GALLBLADDER PAIN [None]
